FAERS Safety Report 9784154 (Version 1)
Quarter: 2013Q4

REPORT INFORMATION
  Report Type: Spontaneous
  Country: RU (occurrence: RU)
  Receive Date: 20131226
  Receipt Date: 20131226
  Transmission Date: 20140711
  Serious: Yes (Death)
  Sender: FDA-Public Use
  Company Number: PHHY2013RU151320

PATIENT
  Age: 44 Year
  Sex: Male

DRUGS (3)
  1. GLIVEC [Suspect]
     Route: 048
  2. CYTOSAR [Concomitant]
  3. DAUNORUBICIN [Concomitant]

REACTIONS (4)
  - Multi-organ failure [Fatal]
  - Disseminated intravascular coagulation [Fatal]
  - Pulmonary oedema [Fatal]
  - Pancytopenia [Fatal]
